FAERS Safety Report 23467127 (Version 1)
Quarter: 2024Q1

REPORT INFORMATION
  Report Type: Spontaneous
  Country: US (occurrence: None)
  Receive Date: 20240201
  Receipt Date: 20240201
  Transmission Date: 20240410
  Serious: No
  Sender: FDA-Public Use
  Company Number: None

PATIENT
  Sex: Male

DRUGS (1)
  1. PREGNYL [Suspect]
     Active Substance: CHORIOGONADOTROPIN ALFA
     Indication: Testicular failure
     Dosage: OTHER STRENGTH : 10,000U/V;?FREQUENCY : 3 TIMES A WEEK;?
     Route: 030
     Dates: start: 202401

REACTIONS (1)
  - Incorrect dose administered [None]
